FAERS Safety Report 9253827 (Version 1)
Quarter: 2013Q2

REPORT INFORMATION
  Report Type: Spontaneous
  Country: BR (occurrence: BR)
  Receive Date: 20130425
  Receipt Date: 20130425
  Transmission Date: 20140414
  Serious: Yes (Other)
  Sender: FDA-Public Use
  Company Number: BR-ACCORD-017342

PATIENT
  Age: 68 Year
  Sex: Female
  Weight: 57 kg

DRUGS (5)
  1. PACLITAXEL [Suspect]
     Indication: BREAST CANCER
     Dosage: SECOND CYCLE
     Route: 042
     Dates: start: 20130125, end: 20130125
  2. PARACETAMOL [Concomitant]
     Route: 048
     Dates: start: 20130125, end: 20130125
  3. ENALAPRIL [Concomitant]
     Route: 048
     Dates: start: 20130125, end: 20130125
  4. METFORMIN [Concomitant]
     Route: 048
     Dates: start: 20130125, end: 20130125
  5. DEXAMETHASONE [Concomitant]
     Route: 042
     Dates: start: 20130125, end: 20130125

REACTIONS (4)
  - Hypertension [Recovered/Resolved]
  - Malaise [Recovered/Resolved]
  - Back pain [Recovered/Resolved]
  - Hyperhidrosis [Recovered/Resolved]
